FAERS Safety Report 8309877 (Version 7)
Quarter: 2012Q4

REPORT INFORMATION
  Report Type: Report from Study
  Country: BR (occurrence: BR)
  Receive Date: 20111223
  Receipt Date: 20120924
  Transmission Date: 20130627
  Serious: Yes (Other)
  Sender: FDA-Public Use
  Company Number: BR-NOVOPROD-341291

PATIENT
  Age: 54 Year
  Sex: Female
  Weight: 77.9 kg

DRUGS (6)
  1. LIRAGLUTIDE FLEXPEN [Suspect]
     Indication: OBESITY
     Dosage: 0.6 mg, qd
     Route: 058
     Dates: start: 20110816, end: 20110822
  2. LIRAGLUTIDE FLEXPEN [Suspect]
     Dosage: 1.2 mg, qd
     Route: 058
     Dates: start: 20110823, end: 20110829
  3. LIRAGLUTIDE FLEXPEN [Suspect]
     Dosage: 2.4 mg, qd
     Route: 058
     Dates: start: 20110830, end: 20110905
  4. LIRAGLUTIDE FLEXPEN [Suspect]
     Dosage: 3 mg, qd
     Route: 058
     Dates: start: 20110906, end: 20111208
  5. OMEPRAZOLE [Concomitant]
     Indication: GASTRITIS
     Dosage: UNK, single
  6. OMEPRAZOLE [Concomitant]
     Indication: OESOPHAGITIS

REACTIONS (1)
  - Hepatitis acute [Recovered/Resolved]
